APPROVED DRUG PRODUCT: DURADYNE DHC
Active Ingredient: ACETAMINOPHEN; HYDROCODONE BITARTRATE
Strength: 500MG;5MG
Dosage Form/Route: TABLET;ORAL
Application: A087809 | Product #001
Applicant: FOREST PHARMACEUTICALS INC
Approved: Mar 17, 1983 | RLD: No | RS: No | Type: DISCN